FAERS Safety Report 16833724 (Version 1)
Quarter: 2019Q3

REPORT INFORMATION
  Report Type: Spontaneous
  Country: US (occurrence: US)
  Receive Date: 20190920
  Receipt Date: 20190920
  Transmission Date: 20191005
  Serious: Yes (Other)
  Sender: FDA-Public Use
  Company Number: US-PFIZER INC-2019401926

PATIENT
  Age: 62 Year
  Sex: Female

DRUGS (3)
  1. TENOLOL [Concomitant]
     Indication: CARDIAC DISORDER
     Dosage: UNK
  2. LYRICA [Concomitant]
     Active Substance: PREGABALIN
     Dosage: UNK
  3. XELJANZ [Suspect]
     Active Substance: TOFACITINIB CITRATE
     Indication: RHEUMATOID ARTHRITIS
     Dosage: 1 DF, 1X/DAY

REACTIONS (2)
  - Immune system disorder [Unknown]
  - Pneumonia [Recovered/Resolved]
